FAERS Safety Report 20976131 (Version 3)
Quarter: 2022Q3

REPORT INFORMATION
  Report Type: Spontaneous
  Country: GB (occurrence: GB)
  Receive Date: 20220617
  Receipt Date: 20220715
  Transmission Date: 20221026
  Serious: Yes (Death, Other)
  Sender: FDA-Public Use
  Company Number: GB-NOVARTISPH-PHHY2018GB149940

PATIENT
  Age: 37 Year
  Sex: Male

DRUGS (12)
  1. MOXIFLOXACIN HYDROCHLORIDE [Suspect]
     Active Substance: MOXIFLOXACIN HYDROCHLORIDE
     Indication: Tuberculosis of central nervous system
     Dosage: UNK
     Route: 042
  2. MOXIFLOXACIN HYDROCHLORIDE [Suspect]
     Active Substance: MOXIFLOXACIN HYDROCHLORIDE
     Indication: Disseminated tuberculosis
  3. ISONIAZID\RIFAMPIN [Suspect]
     Active Substance: ISONIAZID\RIFAMPIN
     Indication: Tuberculosis of central nervous system
     Dosage: UNK
     Route: 042
  4. ISONIAZID\RIFAMPIN [Suspect]
     Active Substance: ISONIAZID\RIFAMPIN
     Indication: Disseminated tuberculosis
  5. PYRAZINAMIDE [Suspect]
     Active Substance: PYRAZINAMIDE
     Indication: Tuberculosis of central nervous system
     Dosage: UNK
     Route: 042
  6. PYRAZINAMIDE [Suspect]
     Active Substance: PYRAZINAMIDE
     Indication: Disseminated tuberculosis
  7. DEXAMETHASONE [Suspect]
     Active Substance: DEXAMETHASONE
     Indication: Tuberculosis of central nervous system
     Dosage: 8 MG, TID (TDS)
     Route: 042
  8. DEXAMETHASONE [Suspect]
     Active Substance: DEXAMETHASONE
     Indication: Immune reconstitution inflammatory syndrome
     Dosage: 8 MG, BID (DOSE REDUCED, Q12H)
     Route: 065
  9. DEXAMETHASONE [Suspect]
     Active Substance: DEXAMETHASONE
     Dosage: UNK, DOSE INCREASED
     Route: 065
  10. DEXAMETHASONE [Suspect]
     Active Substance: DEXAMETHASONE
     Dosage: 24 MG, QD, 8 MILLIGRAM, TID
     Route: 042
  11. THALIDOMIDE [Suspect]
     Active Substance: THALIDOMIDE
     Indication: Tuberculosis of central nervous system
     Dosage: UNK
     Route: 065
  12. THALIDOMIDE [Suspect]
     Active Substance: THALIDOMIDE
     Indication: Steroid therapy

REACTIONS (7)
  - Cardiac arrest [Fatal]
  - Drug resistance [Unknown]
  - Condition aggravated [Unknown]
  - Immune reconstitution inflammatory syndrome [Unknown]
  - Coma scale abnormal [Unknown]
  - Tuberculosis of central nervous system [Unknown]
  - Product use in unapproved indication [Unknown]
